FAERS Safety Report 4945121-X (Version None)
Quarter: 2006Q1

REPORT INFORMATION
  Report Type: 
  Country: None (occurrence: None)
  Receive Date: 20060316
  Receipt Date: 20060307
  Transmission Date: 20060701
  Serious: Yes (Other)
  Sender: FDA-Public Use
  Company Number: GB-JNJFOC-20060301834

PATIENT
  Sex: Female

DRUGS (1)
  1. REMICADE [Suspect]
     Indication: PSORIASIS
     Dosage: 3-3.5MG/KG INTERMITTENTLY
     Route: 042

REACTIONS (2)
  - CARDIAC FAILURE CONGESTIVE [None]
  - LYMPHOMA [None]
